FAERS Safety Report 26028644 (Version 1)
Quarter: 2025Q4

REPORT INFORMATION
  Report Type: Spontaneous
  Country: TW (occurrence: TW)
  Receive Date: 20251111
  Receipt Date: 20251111
  Transmission Date: 20260117
  Serious: Yes (Hospitalization)
  Sender: AMGEN
  Company Number: TW-PFIZER INC-PV202500130611

PATIENT
  Age: 82 Year
  Sex: Female

DRUGS (2)
  1. ENBREL [Suspect]
     Active Substance: ETANERCEPT
     Indication: Rheumatoid arthritis
     Dosage: 25 MG, 2X/WEEK (BIW)
     Route: 058
     Dates: start: 20110412, end: 20150213
  2. ENBREL [Suspect]
     Active Substance: ETANERCEPT
     Dosage: 50 MG, WEEKLY(QW, ONCE A WEEK)
     Route: 058
     Dates: start: 20150214

REACTIONS (2)
  - Spondylolisthesis [Recovering/Resolving]
  - Sciatica [Recovering/Resolving]
